FAERS Safety Report 24663966 (Version 2)
Quarter: 2025Q2

REPORT INFORMATION
  Report Type: Spontaneous
  Country: FR (occurrence: FR)
  Receive Date: 20241126
  Receipt Date: 20250530
  Transmission Date: 20250717
  Serious: Yes (Death)
  Sender: RANBAXY
  Company Number: FR-AFSSAPS-LY2024001591

PATIENT
  Age: 9 Day
  Sex: Male
  Weight: 3.88 kg

DRUGS (5)
  1. MIDAZOLAM [Suspect]
     Active Substance: MIDAZOLAM
     Indication: Sedation
     Route: 040
     Dates: start: 20240712, end: 20240719
  2. LEVETIRACETAM [Suspect]
     Active Substance: LEVETIRACETAM
     Indication: Status epilepticus
     Route: 040
     Dates: start: 20240712, end: 20240712
  3. LEVETIRACETAM [Suspect]
     Active Substance: LEVETIRACETAM
     Dosage: 80 MILLIGRAM, BID
     Route: 048
     Dates: start: 20240712, end: 20240720
  4. THIOPENTAL [Suspect]
     Active Substance: THIOPENTAL
     Indication: Status epilepticus
     Route: 040
     Dates: start: 20240713, end: 20240719
  5. ACETAMINOPHEN [Suspect]
     Active Substance: ACETAMINOPHEN
     Indication: Pain
     Route: 048
     Dates: start: 20240711, end: 20240719

REACTIONS (1)
  - Gastrointestinal necrosis [Fatal]

NARRATIVE: CASE EVENT DATE: 20240719
